FAERS Safety Report 5296209-8 (Version None)
Quarter: 2007Q2

REPORT INFORMATION
  Report Type: 
  Country: None (occurrence: None)
  Receive Date: 20070413
  Receipt Date: 20070406
  Transmission Date: 20071010
  Serious: Yes (Hospitalization)
  Sender: FDA-Public Use
  Company Number: CZ-GLAXOSMITHKLINE-B0463956A

PATIENT
  Age: 65 Year
  Sex: Female
  Weight: 50 kg

DRUGS (3)
  1. LAPATINIB [Suspect]
     Indication: BREAST CANCER METASTATIC
     Dosage: 1250MG PER DAY
     Route: 048
     Dates: start: 20070322
  2. CAPECITABINE [Suspect]
     Indication: BREAST CANCER METASTATIC
     Dosage: 3000MG PER DAY
     Route: 048
     Dates: start: 20070322
  3. ZOMETA [Concomitant]
     Indication: METASTASES TO BONE
     Dosage: 4MG MONTHLY
     Route: 042
     Dates: start: 20060802

REACTIONS (7)
  - BLOOD ALBUMIN INCREASED [None]
  - BLOOD BILIRUBIN INCREASED [None]
  - BLOOD GLUCOSE INCREASED [None]
  - DIARRHOEA [None]
  - FATIGUE [None]
  - SUBILEUS [None]
  - VOMITING [None]
